FAERS Safety Report 6570045-4 (Version None)
Quarter: 2010Q1

REPORT INFORMATION
  Report Type: 
  Country: None (occurrence: None)
  Receive Date: 20100204
  Receipt Date: 20100127
  Transmission Date: 20100710
  Serious: Yes (Other)
  Sender: FDA-Public Use
  Company Number: DE-ROCHE-683112

PATIENT
  Age: 44 Year
  Sex: Male

DRUGS (2)
  1. AVASTIN [Suspect]
     Indication: GLIOMA
     Route: 065
     Dates: start: 20090504
  2. CCNU [Suspect]
     Indication: GLIOMA
     Route: 065
     Dates: start: 20090406, end: 20100127

REACTIONS (1)
  - LIVER FUNCTION TEST ABNORMAL [None]
